FAERS Safety Report 23987186 (Version 7)
Quarter: 2024Q4

REPORT INFORMATION
  Report Type: Spontaneous
  Country: US (occurrence: US)
  Receive Date: 20240618
  Receipt Date: 20241001
  Transmission Date: 20250114
  Serious: No
  Sender: PFIZER
  Company Number: US-PFIZER INC-202400192574

PATIENT
  Age: 12 Year
  Sex: Male
  Weight: 40.816 kg

DRUGS (5)
  1. GENOTROPIN [Suspect]
     Active Substance: SOMATROPIN
     Indication: Growth retardation
     Dosage: 1.4 MG, DAILY
     Route: 030
     Dates: start: 202401
  2. GENOTROPIN [Suspect]
     Active Substance: SOMATROPIN
     Indication: Bartter^s syndrome
     Dosage: 1.8 MG, 1X/DAY
     Route: 030
     Dates: start: 20240103
  3. GENOTROPIN [Suspect]
     Active Substance: SOMATROPIN
     Indication: Diabetes insipidus
  4. POTASSIUM CHLORIDE [Concomitant]
     Active Substance: POTASSIUM CHLORIDE
     Indication: Hypokalaemia
     Dosage: 90 MEQ, DAILY
  5. POTASSIUM CHLORIDE [Concomitant]
     Active Substance: POTASSIUM CHLORIDE
     Dosage: 30 MEQ, 3X/DAY

REACTIONS (6)
  - Incorrect dose administered by device [Unknown]
  - Accidental exposure to product [Unknown]
  - Exposure via skin contact [Unknown]
  - Device difficult to use [Unknown]
  - Device leakage [Unknown]
  - Incorrect route of product administration [Unknown]

NARRATIVE: CASE EVENT DATE: 20240101
